FAERS Safety Report 15889433 (Version 1)
Quarter: 2019Q1

REPORT INFORMATION
  Report Type: Spontaneous
  Country: US (occurrence: US)
  Receive Date: 20190109
  Receipt Date: 20190109
  Transmission Date: 20190417
  Serious: No
  Sender: FDA-Public Use
  Company Number: None

PATIENT
  Age: 78 Year
  Sex: Female

DRUGS (3)
  1. BYSTOLIC [Concomitant]
     Active Substance: NEBIVOLOL HYDROCHLORIDE
  2. ATORVASTATIN [Concomitant]
     Active Substance: ATORVASTATIN
  3. EXJADE [Suspect]
     Active Substance: DEFERASIROX
     Dates: start: 201810

REACTIONS (5)
  - Abdominal discomfort [None]
  - Abdominal distension [None]
  - Hypophagia [None]
  - Flatulence [None]
  - Dizziness postural [None]

NARRATIVE: CASE EVENT DATE: 20181204
